FAERS Safety Report 26184367 (Version 1)
Quarter: 2025Q4

REPORT INFORMATION
  Report Type: Spontaneous
  Country: US (occurrence: US)
  Receive Date: 20251222
  Receipt Date: 20251222
  Transmission Date: 20260117
  Serious: No
  Sender: BIOCON
  Company Number: US-MIMS-BCONMC-18455

PATIENT

DRUGS (1)
  1. YESINTEK [Suspect]
     Active Substance: USTEKINUMAB-KFCE
     Indication: Product used for unknown indication
     Dosage: 90 MILLIGRAM, EVERY 6 WEEKS MAINTENANCE DOSING
     Route: 058

REACTIONS (1)
  - Therapy non-responder [Unknown]
